FAERS Safety Report 19241148 (Version 1)
Quarter: 2021Q2

REPORT INFORMATION
  Report Type: Spontaneous
  Country: US (occurrence: US)
  Receive Date: 20210510
  Receipt Date: 20210510
  Transmission Date: 20210717
  Serious: No
  Sender: FDA-Public Use
  Company Number: None

PATIENT
  Age: 37 Year
  Sex: Female
  Weight: 125 kg

DRUGS (1)
  1. FERUMOXYTOL [Suspect]
     Active Substance: FERUMOXYTOL NON-STOICHIOMETRIC MAGNETITE
     Indication: ANAEMIA
     Route: 042
     Dates: start: 20210416, end: 20210416

REACTIONS (9)
  - Angioedema [None]
  - Anaphylactic reaction [None]
  - Abdominal pain [None]
  - Wheezing [None]
  - Back pain [None]
  - Infusion related reaction [None]
  - Dyspnoea [None]
  - Cough [None]
  - Hypertension [None]

NARRATIVE: CASE EVENT DATE: 20210416
